FAERS Safety Report 12094329 (Version 1)
Quarter: 2016Q1

REPORT INFORMATION
  Report Type: Spontaneous
  Country: US (occurrence: US)
  Receive Date: 20160219
  Receipt Date: 20160219
  Transmission Date: 20160526
  Serious: No
  Sender: FDA-Public Use
  Company Number: US-FRI-1000074910

PATIENT
  Sex: Female

DRUGS (3)
  1. SAVELLA [Suspect]
     Active Substance: MILNACIPRAN HYDROCHLORIDE
  2. SAVELLA [Suspect]
     Active Substance: MILNACIPRAN HYDROCHLORIDE
  3. SAVELLA [Suspect]
     Active Substance: MILNACIPRAN HYDROCHLORIDE

REACTIONS (8)
  - Hot flush [Unknown]
  - Drug ineffective [Unknown]
  - Nausea [Unknown]
  - Diarrhoea [Unknown]
  - Influenza like illness [Unknown]
  - Insomnia [Unknown]
  - Hyperhidrosis [Unknown]
  - Nightmare [Unknown]
